FAERS Safety Report 20865782 (Version 1)
Quarter: 2022Q2

REPORT INFORMATION
  Report Type: Spontaneous
  Country: US (occurrence: None)
  Receive Date: 20220523
  Receipt Date: 20220523
  Transmission Date: 20220720
  Serious: Yes (Hospitalization)
  Sender: FDA-Public Use
  Company Number: None

PATIENT
  Sex: Female

DRUGS (20)
  1. CYCLOSPORINE [Suspect]
     Active Substance: CYCLOSPORINE
     Indication: Haematuria
     Dosage: FREQUENCY : EVERY 12 HOURS;?
     Route: 048
     Dates: start: 20220317
  2. ALBUTEROL AER HFA [Concomitant]
  3. AMLODIPINE TAB [Concomitant]
  4. ATORVASTATIN [Concomitant]
     Active Substance: ATORVASTATIN
  5. BENZONATATE CAP [Concomitant]
  6. CALCIUM ACETATE [Concomitant]
     Active Substance: CALCIUM ACETATE
  7. CARVEDILOL [Concomitant]
     Active Substance: CARVEDILOL
  8. FLUTICASONE SPR [Concomitant]
  9. FUROSEMIDE TAB [Concomitant]
  10. LIDOCAINE PAD [Concomitant]
  11. LOSARTAN POT TAB [Concomitant]
  12. METHOCARBAM TAB [Concomitant]
  13. METHYLPRED TAB [Concomitant]
  14. MONTELUKAST SODIUM [Concomitant]
     Active Substance: MONTELUKAST SODIUM
  15. NIFEDIPINE TAB ER [Concomitant]
  16. SPIRONOLACT TAB [Concomitant]
  17. SPS SUS [Concomitant]
  18. SYNTHROID TAB [Concomitant]
  19. TRIAMCIN ACE INJ [Concomitant]
  20. VITAMIN D CAP [Concomitant]

REACTIONS (1)
  - Hospitalisation [None]
